FAERS Safety Report 7626854-3 (Version None)
Quarter: 2011Q3

REPORT INFORMATION
  Report Type: 
  Country: None (occurrence: None)
  Receive Date: 20110721
  Receipt Date: 20091130
  Transmission Date: 20111222
  Serious: Yes (Other)
  Sender: FDA-Public Use
  Company Number: US-BAYER-200941227NA

PATIENT
  Age: 53 Year
  Sex: Male
  Weight: 96.4 kg

DRUGS (16)
  1. LISINOPRIL [Concomitant]
     Dosage: 2.5 MG, QD LONG TERM
     Route: 048
  2. HEPARIN [Concomitant]
     Dosage: 5000UNITS/30000UNITS
     Route: 042
     Dates: start: 20040527
  3. METOPROLOL TARTRATE [Concomitant]
     Dosage: 12.5-25MG TWICE DAILY LONG TERM
     Route: 048
  4. FERROUS SULFATE TAB [Concomitant]
     Dosage: 325 MG, TID LONG TERM
     Route: 048
  5. TEMAZEPAM [Concomitant]
     Dosage: 15 MG, HS LONG TERM
     Route: 048
  6. EPOETIN ALFA [Concomitant]
     Dosage: 10000 U ON MONDAY, WEDNESDAY, FRIDAY LONG TERM
     Route: 058
  7. PROTAMINE SULFATE [Concomitant]
     Dosage: 200 MG, UNK
     Route: 042
     Dates: start: 20040527
  8. PROCRIT [Concomitant]
     Dosage: 20 ML, UNK
     Route: 042
     Dates: start: 20040527
  9. OMEPRAZOLE [Concomitant]
     Dosage: 20 MG, QD LONG TERM
     Route: 048
  10. MIDAZOLAM HCL [Concomitant]
     Dosage: 2MG/2ML
     Route: 042
     Dates: start: 20040527
  11. VERSED [Concomitant]
     Dosage: 5 MG OVER 20 MINS
     Route: 042
     Dates: start: 20040527
  12. FENTANYL [Concomitant]
     Dosage: 20/5
  13. CEFUROXIME [Concomitant]
     Dosage: 1.5 MG, UNK
     Route: 042
     Dates: start: 20040527
  14. TRASYLOL [Suspect]
     Indication: CORONARY ARTERY BYPASS
     Dosage: 100 ML, UNK
     Route: 042
     Dates: start: 20040527, end: 20040527
  15. SIMVASTATIN [Concomitant]
     Dosage: 20 MG, HS LONG TERM
     Route: 048
  16. ACETAMINOPHEN [Concomitant]

REACTIONS (11)
  - RENAL FAILURE [None]
  - STRESS [None]
  - RENAL INJURY [None]
  - INJURY [None]
  - EMOTIONAL DISTRESS [None]
  - RENAL IMPAIRMENT [None]
  - PAIN [None]
  - UNEVALUABLE EVENT [None]
  - ANXIETY [None]
  - ANHEDONIA [None]
  - FEAR [None]
